FAERS Safety Report 19032504 (Version 2)
Quarter: 2021Q2

REPORT INFORMATION
  Report Type: Spontaneous
  Country: JP (occurrence: JP)
  Receive Date: 20210319
  Receipt Date: 20210423
  Transmission Date: 20210717
  Serious: Yes (Disabling, Other)
  Sender: FDA-Public Use
  Company Number: JP-AMGEN-JPNSP2021040932

PATIENT
  Age: 69 Year
  Sex: Male
  Weight: 45 kg

DRUGS (6)
  1. DASATINIB. [Concomitant]
     Active Substance: DASATINIB
     Dosage: 100 MILLIGRAM, QD
     Dates: start: 20200920
  2. SPRYCEL [Concomitant]
     Active Substance: DASATINIB
     Dosage: UNK
  3. DASATINIB. [Concomitant]
     Active Substance: DASATINIB
     Dosage: 140 MILLIGRAM, QD
     Dates: start: 20200925, end: 20201102
  4. BLINCYTO [Suspect]
     Active Substance: BLINATUMOMAB
     Dosage: 28 MICROGRAM, QD
     Route: 041
     Dates: start: 2020, end: 20201022
  5. DASATINIB. [Concomitant]
     Active Substance: DASATINIB
     Dosage: 50 MILLIGRAM, QD
     Route: 065
     Dates: start: 20200918
  6. BLINCYTO [Suspect]
     Active Substance: BLINATUMOMAB
     Indication: B PRECURSOR TYPE ACUTE LEUKAEMIA
     Dosage: 9 MICROGRAM, QD
     Route: 041
     Dates: start: 20200925, end: 2020

REACTIONS (2)
  - Acute lymphocytic leukaemia recurrent [Not Recovered/Not Resolved]
  - Optic perineuritis [Not Recovered/Not Resolved]

NARRATIVE: CASE EVENT DATE: 20201018
